FAERS Safety Report 9628066 (Version 1)
Quarter: 2013Q4

REPORT INFORMATION
  Report Type: Spontaneous
  Country: TW (occurrence: TW)
  Receive Date: 20131016
  Receipt Date: 20131016
  Transmission Date: 20140711
  Serious: Yes (Hospitalization)
  Sender: FDA-Public Use
  Company Number: TW-MYLANLABS-2013S1022376

PATIENT
  Age: 20 Year
  Sex: Female

DRUGS (1)
  1. KETAMINE [Suspect]
     Indication: DRUG ABUSE
     Dosage: 2-5 G/DAY
     Route: 045

REACTIONS (3)
  - Renal infarct [Not Recovered/Not Resolved]
  - Cystitis [Unknown]
  - Drug abuse [Not Recovered/Not Resolved]
